FAERS Safety Report 7150629-5 (Version None)
Quarter: 2010Q4

REPORT INFORMATION
  Report Type: 
  Country: None (occurrence: None)
  Receive Date: 20101210
  Receipt Date: 20101206
  Transmission Date: 20110411
  Serious: Yes (Other)
  Sender: FDA-Public Use
  Company Number: US-AMGEN-USACT2010008010

PATIENT

DRUGS (3)
  1. PANITUMUMAB [Suspect]
     Indication: OESOPHAGEAL ADENOCARCINOMA
     Dosage: 6 MG/KG, Q2WK
     Dates: start: 20100825
  2. CISPLATIN [Suspect]
     Indication: OESOPHAGEAL ADENOCARCINOMA
     Dosage: 40 MG/M2, Q2WK
     Dates: start: 20100825
  3. DOCETAXEL [Suspect]
     Indication: OESOPHAGEAL ADENOCARCINOMA
     Dosage: 40 MG/M2, Q2WK
     Dates: start: 20100825

REACTIONS (7)
  - DEHYDRATION [None]
  - DYSPHAGIA [None]
  - GASTROINTESTINAL PAIN [None]
  - NAUSEA [None]
  - OESOPHAGITIS [None]
  - VOMITING [None]
  - WEIGHT DECREASED [None]
